FAERS Safety Report 25215435 (Version 1)
Quarter: 2025Q2

REPORT INFORMATION
  Report Type: Spontaneous
  Country: US (occurrence: US)
  Receive Date: 20250418
  Receipt Date: 20250418
  Transmission Date: 20250716
  Serious: No
  Sender: Phathom Pharmaceuticals
  Company Number: US-PHATHOM PHARMACEUTICALS INC.-2025PHT00441

PATIENT
  Sex: Male
  Weight: 77.098 kg

DRUGS (1)
  1. VOQUEZNA [Suspect]
     Active Substance: VONOPRAZAN FUMARATE
     Route: 048
     Dates: end: 2025

REACTIONS (6)
  - Personality change [Unknown]
  - Euphoric mood [Unknown]
  - Hypophagia [Unknown]
  - Weight decreased [Unknown]
  - Insomnia [Unknown]
  - Vitamin B12 deficiency [Unknown]
